FAERS Safety Report 20631880 (Version 4)
Quarter: 2022Q2

REPORT INFORMATION
  Report Type: Spontaneous
  Country: NL (occurrence: NL)
  Receive Date: 20220324
  Receipt Date: 20220504
  Transmission Date: 20220721
  Serious: Yes (Other)
  Sender: FDA-Public Use
  Company Number: NL-BAYER-2022A042531

PATIENT
  Age: 28 Year
  Sex: Female

DRUGS (1)
  1. MIRENA [Suspect]
     Active Substance: LEVONORGESTREL
     Dosage: 20?G/DAY
     Route: 015
     Dates: start: 20180425, end: 20220314

REACTIONS (4)
  - Basedow^s disease [Recovering/Resolving]
  - Basedow^s disease [Recovered/Resolved]
  - Device material issue [None]
  - Device material issue [None]

NARRATIVE: CASE EVENT DATE: 20190603
